FAERS Safety Report 6844888-3 (Version None)
Quarter: 2010Q3

REPORT INFORMATION
  Report Type: 
  Country: None (occurrence: None)
  Receive Date: 20100715
  Receipt Date: 20100713
  Transmission Date: 20110219
  Serious: Yes (Death, Hospitalization)
  Sender: FDA-Public Use
  Company Number: US-CEPHALON-2010003757

PATIENT
  Sex: Female

DRUGS (2)
  1. TREANDA [Suspect]
     Route: 042
  2. RITUXAN [Concomitant]

REACTIONS (3)
  - DEATH [None]
  - ENCEPHALOPATHY [None]
  - MUSCULAR WEAKNESS [None]
